FAERS Safety Report 4408172-X (Version None)
Quarter: 2004Q3

REPORT INFORMATION
  Report Type: 
  Country: None (occurrence: None)
  Receive Date: 20040722
  Receipt Date: 20040614
  Transmission Date: 20050211
  Serious: Yes (Other)
  Sender: FDA-Public Use
  Company Number: GB-JNJFOC-20040603177

PATIENT
  Age: 70 Year
  Sex: Female

DRUGS (6)
  1. REMICADE [Suspect]
     Indication: RHEUMATOID ARTHRITIS
     Dosage: 300 MG, INTRAVENOUS
     Route: 042
     Dates: start: 20031113
  2. METHOTREXATE [Concomitant]
  3. SIMVASTATIN [Concomitant]
  4. AMITRIPTYLINE HCL [Concomitant]
  5. FOLIC ACID [Concomitant]
  6. CELECOXIB (CELECOXIB) [Concomitant]

REACTIONS (1)
  - PHOTOSENSITIVITY REACTION [None]
